FAERS Safety Report 17735725 (Version 16)
Quarter: 2023Q1

REPORT INFORMATION
  Report Type: Other
  Country: CN (occurrence: None)
  Receive Date: 20200501
  Receipt Date: 20230112
  Transmission Date: 20230417
  Serious: Yes (Hospitalization, Other)
  Sender: FDA-Public Use
  Company Number: CN-ROCHE-2589333

PATIENT
  Age: 59 Year
  Sex: Female

DRUGS (3)
  1. VEMURAFENIB [Suspect]
     Active Substance: VEMURAFENIB
     Indication: Malignant melanoma
     Route: 048
     Dates: start: 20200407
  2. VEMURAFENIB [Suspect]
     Active Substance: VEMURAFENIB
     Route: 048
     Dates: start: 20200422
  3. OMEPRAZOLE [Concomitant]
     Active Substance: OMEPRAZOLE

REACTIONS (16)
  - Drug eruption [Recovered/Resolved]
  - Lymphocyte count decreased [Recovered/Resolved]
  - Hypokalaemia [Recovered/Resolved]
  - Pyrexia [Recovered/Resolved]
  - Constipation [Recovered/Resolved]
  - White blood cell count decreased [Recovered/Resolved]
  - Arthralgia [Recovering/Resolving]
  - Platelet count decreased [Recovering/Resolving]
  - Proteinuria [Recovering/Resolving]
  - Hyperglycaemia [Recovered/Resolved]
  - Hypophosphataemia [Recovering/Resolving]
  - Hypomagnesaemia [Recovered/Resolved]
  - Hypoalbuminaemia [Recovered/Resolved]
  - Urinary tract infection [Recovering/Resolving]
  - Swelling [Recovering/Resolving]
  - Back pain [Recovering/Resolving]

NARRATIVE: CASE EVENT DATE: 20200410
